FAERS Safety Report 4554295-4 (Version None)
Quarter: 2005Q1

REPORT INFORMATION
  Report Type: 
  Country: None (occurrence: None)
  Receive Date: 20050118
  Receipt Date: 20050114
  Transmission Date: 20050727
  Serious: Yes (Hospitalization)
  Sender: FDA-Public Use
  Company Number: US-GLAXOSMITHKLINE-A0540768A

PATIENT
  Sex: Male

DRUGS (3)
  1. COMBIVIR [Suspect]
     Indication: HIV INFECTION
     Route: 048
  2. KALETRA [Concomitant]
  3. CONCURRENT MEDICATIONS [Concomitant]

REACTIONS (2)
  - MANIA [None]
  - PSYCHOTIC DISORDER [None]
